FAERS Safety Report 7701617-9 (Version None)
Quarter: 2011Q3

REPORT INFORMATION
  Report Type: 
  Country: None (occurrence: None)
  Receive Date: 20110822
  Receipt Date: 20110818
  Transmission Date: 20111222
  Serious: Yes (Hospitalization)
  Sender: FDA-Public Use
  Company Number: KR-SANOFI-AVENTIS-2011SA027687

PATIENT
  Age: 52 Year
  Sex: Male
  Weight: 53.8 kg

DRUGS (3)
  1. CABAZITAXEL [Suspect]
     Indication: PROSTATE CANCER
     Route: 042
     Dates: start: 20110418, end: 20110418
  2. PANTOPRAZOLE [Concomitant]
     Route: 042
  3. PREDNISOLONE [Suspect]
     Indication: PROSTATE CANCER
     Route: 048

REACTIONS (1)
  - MELAENA [None]
